FAERS Safety Report 10244986 (Version 1)
Quarter: 2014Q2

REPORT INFORMATION
  Report Type: Spontaneous
  Country: US (occurrence: None)
  Receive Date: 20140616
  Receipt Date: 20140616
  Transmission Date: 20141212
  Serious: Yes (Disabling, Other)
  Sender: FDA-Public Use
  Company Number: None

PATIENT
  Age: 48 Year
  Sex: Female
  Weight: 52.16 kg

DRUGS (9)
  1. LIALDA DR 1.2 GM TABLET (MESALAMINE) DELAYED RELEASE SHIRE SHIRE US INC. [Suspect]
     Indication: COLITIS ULCERATIVE
     Dates: start: 201401, end: 20140514
  2. ASACOL [Concomitant]
  3. CANASA [Concomitant]
  4. ROWASA [Concomitant]
  5. EPR-PEN [Concomitant]
  6. FISOL ENTERE COTED FISH OIL [Concomitant]
  7. FISH OIL [Concomitant]
  8. VIT D3 [Concomitant]
  9. VSL 3 [Concomitant]

REACTIONS (5)
  - Product substitution issue [None]
  - Medication residue present [None]
  - Disease recurrence [None]
  - Diarrhoea [None]
  - Malabsorption [None]
